FAERS Safety Report 8788143 (Version 2)
Quarter: 2015Q2

REPORT INFORMATION
  Report Type: Report from Study
  Country: US (occurrence: US)
  Receive Date: 20120914
  Receipt Date: 20150623
  Transmission Date: 20150821
  Serious: Yes (Death)
  Sender: FDA-Public Use
  Company Number: US-ROCHE-1126727

PATIENT
  Sex: Female

DRUGS (7)
  1. PROCRIT [Concomitant]
     Active Substance: ERYTHROPOIETIN
  2. AVASTIN [Suspect]
     Active Substance: BEVACIZUMAB
     Indication: UTERINE CANCER
     Route: 042
     Dates: start: 20040808
  3. DURAGESIC [Concomitant]
     Active Substance: FENTANYL
     Route: 065
  4. XANAX [Concomitant]
     Active Substance: ALPRAZOLAM
  5. AVASTIN [Suspect]
     Active Substance: BEVACIZUMAB
     Indication: NASOPHARYNGEAL CANCER
     Route: 042
  6. PERCOCET [Concomitant]
     Active Substance: ACETAMINOPHEN\OXYCODONE HYDROCHLORIDE
     Route: 065
  7. XELODA [Concomitant]
     Active Substance: CAPECITABINE
     Route: 048

REACTIONS (8)
  - Death [Fatal]
  - Pain [Unknown]
  - Abdominal discomfort [Unknown]
  - Off label use [Unknown]
  - Oedema peripheral [Unknown]
  - Swelling face [Unknown]
  - Lip swelling [Unknown]
  - Performance status decreased [Unknown]
